FAERS Safety Report 7289419-1 (Version None)
Quarter: 2011Q1

REPORT INFORMATION
  Report Type: 
  Country: None (occurrence: None)
  Receive Date: 20110211
  Receipt Date: 20110203
  Transmission Date: 20110831
  Serious: Yes (Death)
  Sender: FDA-Public Use
  Company Number: JP-GENENTECH-281447

PATIENT
  Age: 75 Year
  Sex: Male

DRUGS (8)
  1. ETOPOSIDE [Concomitant]
     Indication: MANTLE CELL LYMPHOMA
     Route: 048
  2. DOXORUBICIN HCL [Concomitant]
     Indication: MANTLE CELL LYMPHOMA
  3. VINCRISTINE [Concomitant]
     Indication: MANTLE CELL LYMPHOMA
  4. CLADRIBINE [Suspect]
     Indication: MANTLE CELL LYMPHOMA
     Route: 065
  5. CYCLOPHOSPHAMIDE [Concomitant]
     Indication: MANTLE CELL LYMPHOMA
  6. RITUXAN [Suspect]
     Indication: MANTLE CELL LYMPHOMA
  7. PIRARUBICIN [Concomitant]
     Indication: MANTLE CELL LYMPHOMA
  8. PREDNISOLONE [Concomitant]
     Indication: MANTLE CELL LYMPHOMA

REACTIONS (3)
  - PROGRESSIVE MULTIFOCAL LEUKOENCEPHALOPATHY [None]
  - SEPTIC EMBOLUS [None]
  - ENTEROCOCCAL SEPSIS [None]
